FAERS Safety Report 19755771 (Version 2)
Quarter: 2021Q3

REPORT INFORMATION
  Report Type: Spontaneous
  Country: JP (occurrence: JP)
  Receive Date: 20210827
  Receipt Date: 20210913
  Transmission Date: 20211014
  Serious: Yes (Hospitalization)
  Sender: FDA-Public Use
  Company Number: JP-BIOGEN-2021BI01042493

PATIENT
  Age: 40 Year
  Sex: Male

DRUGS (2)
  1. TYSABRI [Suspect]
     Active Substance: NATALIZUMAB
     Indication: RELAPSING-REMITTING MULTIPLE SCLEROSIS
     Dosage: ON 19?MAY?X+17 YEARS, THE FIRST ADMINISTRATION.
     Route: 065
  2. TYSABRI [Suspect]
     Active Substance: NATALIZUMAB
     Dosage: ON 23?JUN?X+17 YEARS, THE SECOND ADMINISTRATION.
     Route: 065

REACTIONS (1)
  - Multiple sclerosis relapse [Not Recovered/Not Resolved]
